FAERS Safety Report 13544327 (Version 1)
Quarter: 2017Q2

REPORT INFORMATION
  Report Type: Spontaneous
  Country: US (occurrence: US)
  Receive Date: 20170512
  Receipt Date: 20170512
  Transmission Date: 20170830
  Serious: No
  Sender: FDA-Public Use
  Company Number: None

PATIENT
  Age: 85 Year
  Sex: Female

DRUGS (6)
  1. LEVOTHYROXIN [Concomitant]
     Active Substance: LEVOTHYROXINE
  2. REPINIROLE [Concomitant]
  3. NUPLAZID [Suspect]
     Active Substance: PIMAVANSERIN TARTRATE
     Indication: PARKINSON^S DISEASE
     Route: 048
     Dates: start: 20170323
  4. CARVEDILOL. [Concomitant]
     Active Substance: CARVEDILOL
  5. LOVASTATIN. [Concomitant]
     Active Substance: LOVASTATIN
  6. ASPIRIN. [Concomitant]
     Active Substance: ASPIRIN

REACTIONS (2)
  - Inappropriate schedule of drug administration [None]
  - Hip fracture [None]

NARRATIVE: CASE EVENT DATE: 201704
